FAERS Safety Report 14987509 (Version 1)
Quarter: 2018Q2

REPORT INFORMATION
  Report Type: Spontaneous
  Country: DE (occurrence: DE)
  Receive Date: 20180608
  Receipt Date: 20180608
  Transmission Date: 20180711
  Serious: Yes (Hospitalization, Other)
  Sender: FDA-Public Use
  Company Number: DE-AUROBINDO-AUR-APL-2018-029192

PATIENT
  Age: 61 Year
  Sex: Female
  Weight: 80 kg

DRUGS (2)
  1. PREGABADOR [Suspect]
     Active Substance: PREGABALIN
     Indication: PRODUCT USED FOR UNKNOWN INDICATION
     Dosage: 40 DF, SINGLE DOSE
     Route: 048
     Dates: start: 201805, end: 201805
  2. PARACETAMOL [Suspect]
     Active Substance: ACETAMINOPHEN
     Indication: PRODUCT USED FOR UNKNOWN INDICATION
     Dosage: 50 DF, SINGLE DOSE
     Route: 048
     Dates: start: 201805, end: 201805

REACTIONS (8)
  - Acidosis [Unknown]
  - Overdose [Unknown]
  - Suicide attempt [Unknown]
  - Blood lactic acid increased [None]
  - Coma [Unknown]
  - Hypotension [Unknown]
  - Intentional overdose [Unknown]
  - Blood glucose increased [None]

NARRATIVE: CASE EVENT DATE: 201805
